FAERS Safety Report 10510956 (Version 2)
Quarter: 2014Q4

REPORT INFORMATION
  Report Type: Spontaneous
  Country: FR (occurrence: FR)
  Receive Date: 20141010
  Receipt Date: 20141125
  Transmission Date: 20150528
  Serious: Yes (Hospitalization)
  Sender: FDA-Public Use
  Company Number: FR-SA-2014SA138273

PATIENT
  Age: 42 Year
  Sex: Female

DRUGS (7)
  1. MEPHENESIN [Suspect]
     Active Substance: MEPHENESIN
     Dosage: FREQUENCY: SIX TIMES A DAY
     Route: 048
     Dates: start: 20140713, end: 20140908
  2. AVLOCARDYL [Suspect]
     Active Substance: PROPRANOLOL HYDROCHLORIDE
     Route: 048
     Dates: start: 20140814, end: 20140908
  3. DAFALGAN [Suspect]
     Active Substance: ACETAMINOPHEN
     Dosage: 4 TO 6 TABLETS DAILY
     Route: 048
     Dates: start: 20140713, end: 20140908
  4. ZOLPIDEM [Suspect]
     Active Substance: ZOLPIDEM\ZOLPIDEM TARTRATE
     Route: 048
     Dates: start: 20140814, end: 20140908
  5. VERATRAN [Suspect]
     Active Substance: CLOTIAZEPAM
     Route: 048
     Dates: start: 20140814, end: 20140908
  6. PROZAC [Suspect]
     Active Substance: FLUOXETINE HYDROCHLORIDE
     Route: 048
     Dates: start: 20140814, end: 20140908
  7. ZOMIG [Suspect]
     Active Substance: ZOLMITRIPTAN
     Dosage: DOSE: PUNCTUALLY
     Route: 048
     Dates: start: 20140713, end: 20140908

REACTIONS (1)
  - Hepatitis [Recovering/Resolving]

NARRATIVE: CASE EVENT DATE: 20140908
